FAERS Safety Report 6170414-0 (Version None)
Quarter: 2009Q2

REPORT INFORMATION
  Report Type: 
  Country: None (occurrence: None)
  Receive Date: 20090427
  Receipt Date: 20090427
  Transmission Date: 20091009
  Serious: No
  Sender: FDA-Public Use
  Company Number: None

PATIENT
  Sex: Female
  Weight: 83.18 kg

DRUGS (7)
  1. ENALAPRIL MALEATE [Suspect]
     Dosage: 10MG TABLET 10 MG QD ORAL
     Route: 048
     Dates: start: 20090327, end: 20090424
  2. ASPIRIN [Concomitant]
  3. CALCIUM [Concomitant]
  4. HYDROCHLOROTHIAZIDE [Concomitant]
  5. LIPITOR [Concomitant]
  6. NEXIUM [Concomitant]
  7. TRETINOIN [Concomitant]

REACTIONS (1)
  - COUGH [None]
